FAERS Safety Report 8802335 (Version 2)
Quarter: 2015Q2

REPORT INFORMATION
  Report Type: Report from Study
  Country: US (occurrence: US)
  Receive Date: 20120921
  Receipt Date: 20150630
  Transmission Date: 20150821
  Serious: Yes (Death)
  Sender: FDA-Public Use
  Company Number: US-ROCHE-1125908

PATIENT
  Age: 71 Year
  Sex: Female
  Weight: 85 kg

DRUGS (11)
  1. LEUCOVORIN [Concomitant]
     Active Substance: LEUCOVORIN
     Route: 042
  2. TAGAMET [Concomitant]
     Active Substance: CIMETIDINE
     Route: 042
  3. MGSO4 [Concomitant]
     Active Substance: MAGNESIUM SULFATE
     Dosage: 1AMP MGSO4/100CC
     Route: 065
  4. KYTRIL [Concomitant]
     Active Substance: GRANISETRON HYDROCHLORIDE
     Route: 042
  5. HEXADROL [Concomitant]
     Active Substance: DEXAMETHASONE
     Route: 042
  6. 5-FLUOROURACIL [Concomitant]
     Active Substance: FLUOROURACIL
     Route: 042
  7. ELOXATIN [Concomitant]
     Active Substance: OXALIPLATIN
     Route: 042
  8. BENADRYL [Concomitant]
     Active Substance: DIPHENHYDRAMINE HYDROCHLORIDE
     Route: 042
  9. AVASTIN [Suspect]
     Active Substance: BEVACIZUMAB
     Indication: SMALL INTESTINE CARCINOMA
     Route: 042
     Dates: start: 20060206
  10. ERBITUX [Concomitant]
     Active Substance: CETUXIMAB
     Route: 042
  11. ERBITUX [Concomitant]
     Active Substance: CETUXIMAB
     Route: 042

REACTIONS (6)
  - Nausea [Unknown]
  - Dizziness [Unknown]
  - Death [Fatal]
  - Constipation [Unknown]
  - Off label use [Unknown]
  - Fatigue [Unknown]

NARRATIVE: CASE EVENT DATE: 20060424
